FAERS Safety Report 22932482 (Version 11)
Quarter: 2025Q3

REPORT INFORMATION
  Report Type: Report from Study
  Country: US (occurrence: US)
  Receive Date: 20230912
  Receipt Date: 20250923
  Transmission Date: 20251020
  Serious: Yes (Hospitalization, Other)
  Sender: SANDOZ
  Company Number: US-SANDOZ-SDZ2023US021606

PATIENT
  Age: 50 Year
  Sex: Female
  Weight: 65.76 kg

DRUGS (19)
  1. TREPROSTINIL [Suspect]
     Active Substance: TREPROSTINIL
     Route: 042
  2. TREPROSTINIL [Suspect]
     Active Substance: TREPROSTINIL
     Route: 042
  3. TREPROSTINIL [Suspect]
     Active Substance: TREPROSTINIL
     Route: 042
  4. TREPROSTINIL [Suspect]
     Active Substance: TREPROSTINIL
     Route: 042
  5. TREPROSTINIL [Suspect]
     Active Substance: TREPROSTINIL
     Route: 042
  6. TREPROSTINIL [Suspect]
     Active Substance: TREPROSTINIL
     Route: 042
  7. TREPROSTINIL [Suspect]
     Active Substance: TREPROSTINIL
     Indication: Pulmonary arterial hypertension
     Route: 042
     Dates: start: 20230615
  8. TREPROSTINIL [Suspect]
     Active Substance: TREPROSTINIL
     Indication: Pulmonary arterial hypertension
     Route: 042
     Dates: start: 20230828
  9. TYVASO [Suspect]
     Active Substance: TREPROSTINIL
     Indication: Product used for unknown indication
     Route: 065
  10. WINREVAIR [Suspect]
     Active Substance: SOTATERCEPT-CSRK
     Indication: Product used for unknown indication
     Route: 065
  11. BUMETANIDE [Concomitant]
     Active Substance: BUMETANIDE
     Indication: Product used for unknown indication
     Route: 065
  12. ELIQUIS [Concomitant]
     Active Substance: APIXABAN
     Indication: Product used for unknown indication
     Route: 065
  13. GABAPENTIN [Concomitant]
     Active Substance: GABAPENTIN
     Indication: Product used for unknown indication
     Route: 065
  14. OMEPRAZOLE [Concomitant]
     Active Substance: OMEPRAZOLE
     Indication: Product used for unknown indication
     Route: 065
  15. OXYGEN [Concomitant]
     Active Substance: OXYGEN
     Indication: Product used for unknown indication
     Route: 065
  16. SILDENAFIL CITRATE [Concomitant]
     Active Substance: SILDENAFIL CITRATE
     Indication: Product used for unknown indication
     Route: 065
  17. SPIRONOLACTONE [Concomitant]
     Active Substance: SPIRONOLACTONE
     Indication: Product used for unknown indication
     Route: 065
  18. SYMBICORT [Concomitant]
     Active Substance: BUDESONIDE\FORMOTEROL FUMARATE DIHYDRATE
     Indication: Product used for unknown indication
     Route: 065
  19. TYLENOL [Concomitant]
     Active Substance: ACETAMINOPHEN
     Indication: Product used for unknown indication
     Route: 065

REACTIONS (14)
  - Pneumonia [Unknown]
  - Dyspnoea [Unknown]
  - Headache [Unknown]
  - Catheter site haemorrhage [Unknown]
  - Back pain [Unknown]
  - COVID-19 [Unknown]
  - Haemoglobin increased [Unknown]
  - Catheter site pruritus [Unknown]
  - Catheter site erythema [Unknown]
  - Catheter site swelling [Unknown]
  - Pain in jaw [Unknown]
  - Product leakage [Unknown]
  - Product use issue [Unknown]
  - Circumstance or information capable of leading to device use error [Unknown]

NARRATIVE: CASE EVENT DATE: 20240402
